FAERS Safety Report 5009396-3 (Version None)
Quarter: 2006Q2

REPORT INFORMATION
  Report Type: 
  Country: None (occurrence: None)
  Receive Date: 20060522
  Receipt Date: 20060509
  Transmission Date: 20061013
  Serious: Yes (Death, Hospitalization, Other)
  Sender: FDA-Public Use
  Company Number: 2005131347

PATIENT
  Age: 66 Year
  Sex: Female

DRUGS (1)
  1. CELEBREX [Suspect]
     Indication: ANALGESIC EFFECT
     Dosage: 4 IN 1 D, ORAL
     Route: 048
     Dates: start: 20040528, end: 20040101

REACTIONS (1)
  - MYOCARDIAL INFARCTION [None]
